FAERS Safety Report 13371128 (Version 1)
Quarter: 2017Q1

REPORT INFORMATION
  Report Type: Report from Study
  Country: GB (occurrence: GB)
  Receive Date: 20170324
  Receipt Date: 20170324
  Transmission Date: 20170429
  Serious: Yes (Death, Life-Threatening, Hospitalization, Disabling)
  Sender: FDA-Public Use
  Company Number: GB-PFIZER INC-1999002527GB

PATIENT
  Age: 14 Year
  Sex: Female
  Weight: 36 kg

DRUGS (3)
  1. GENOTROPIN [Suspect]
     Active Substance: SOMATROPIN
     Indication: TURNER^S SYNDROME
     Dosage: 4.8 IU, 1X/DAY
     Dates: start: 19980415, end: 19990914
  2. OXANDROLONE. [Concomitant]
     Active Substance: OXANDROLONE
     Dosage: UNK
     Dates: start: 19980708
  3. ETHINYLOESTRADIOL [Concomitant]
     Dosage: UNK
     Dates: start: 19990211

REACTIONS (1)
  - Peritoneal mesothelioma malignant [Fatal]

NARRATIVE: CASE EVENT DATE: 19990815
